FAERS Safety Report 15804597 (Version 8)
Quarter: 2021Q1

REPORT INFORMATION
  Report Type: Spontaneous
  Country: US (occurrence: US)
  Receive Date: 20190109
  Receipt Date: 20210316
  Transmission Date: 20210419
  Serious: Yes (Hospitalization, Other)
  Sender: FDA-Public Use
  Company Number: US-PFIZER INC-2017301493

PATIENT
  Age: 63 Year
  Sex: Female
  Weight: 92 kg

DRUGS (6)
  1. BUTRANS [Concomitant]
     Active Substance: BUPRENORPHINE
     Indication: PAIN
     Dosage: 10 MG, WEEKLY
     Route: 062
  2. TRAMADOL. [Concomitant]
     Active Substance: TRAMADOL
     Indication: PAIN
  3. XELJANZ [Suspect]
     Active Substance: TOFACITINIB CITRATE
     Dosage: 10 MG, 2X/DAY
     Route: 048
  4. XELJANZ [Suspect]
     Active Substance: TOFACITINIB CITRATE
     Dosage: 5 MG, 4X/DAY (2 TABLETS IN THE MORNING AND 2 TABLETS IN THE EVENING)
     Route: 048
  5. XELJANZ [Suspect]
     Active Substance: TOFACITINIB CITRATE
     Dosage: 40 MG, DAILY(2 PILLS IN THE MORNING AND 2 PILLS AT NIGHT)
  6. XELJANZ [Suspect]
     Active Substance: TOFACITINIB CITRATE
     Indication: RHEUMATOID ARTHRITIS
     Dosage: 5 MG, 4X/DAY (BID IN THE AM AND BID IN THE PM)
     Route: 048

REACTIONS (9)
  - Ankle fracture [Recovering/Resolving]
  - Intentional product misuse [Unknown]
  - Gastric infection [Unknown]
  - Foot fracture [Recovering/Resolving]
  - Off label use [Unknown]
  - Skin cancer [Unknown]
  - Illness [Unknown]
  - Sepsis [Unknown]
  - Peripheral swelling [Unknown]

NARRATIVE: CASE EVENT DATE: 201810
